FAERS Safety Report 14539545 (Version 1)
Quarter: 2018Q1

REPORT INFORMATION
  Report Type: Report from Study
  Country: CA (occurrence: CA)
  Receive Date: 20180216
  Receipt Date: 20180216
  Transmission Date: 20180509
  Serious: Yes (Death)
  Sender: FDA-Public Use
  Company Number: PHHY2014CA075127

PATIENT
  Age: 61 Year
  Sex: Male

DRUGS (5)
  1. SANDOSTATIN LAR DEPOT [Suspect]
     Active Substance: OCTREOTIDE ACETATE
     Dosage: UNK
     Route: 030
     Dates: start: 20170419
  2. SANDOSTATIN LAR DEPOT [Suspect]
     Active Substance: OCTREOTIDE ACETATE
     Dosage: UNK
     Route: 030
     Dates: start: 20170818
  3. SANDOSTATIN LAR DEPOT [Suspect]
     Active Substance: OCTREOTIDE ACETATE
     Dosage: 30 MG, QMO
     Route: 030
     Dates: start: 20081218
  4. NEXIUM 1-2-3 [Concomitant]
     Active Substance: AMOXICILLIN\CLARITHROMYCIN\ESOMEPRAZOLE
     Indication: PRODUCT USED FOR UNKNOWN INDICATION
     Route: 065
  5. SANDOSTATIN LAR DEPOT [Suspect]
     Active Substance: OCTREOTIDE ACETATE
     Indication: GASTRINOMA
     Dosage: 30 MG, QMO
     Route: 030
     Dates: start: 2006

REACTIONS (26)
  - Arthralgia [Unknown]
  - Blood pressure increased [Unknown]
  - Synovial cyst [Unknown]
  - Asthenia [Unknown]
  - Dizziness [Unknown]
  - Fatigue [Unknown]
  - Influenza [Recovering/Resolving]
  - Dyspepsia [Unknown]
  - Hypersomnia [Unknown]
  - Abdominal pain upper [Unknown]
  - Decreased appetite [Unknown]
  - General physical health deterioration [Unknown]
  - Chikungunya virus infection [Unknown]
  - Feeling abnormal [Unknown]
  - Blood pressure systolic increased [Unknown]
  - Dysstasia [Unknown]
  - Weight decreased [Unknown]
  - Yellow skin [Unknown]
  - Heart rate increased [Unknown]
  - Abdominal distension [Unknown]
  - Tachycardia [Unknown]
  - Death [Fatal]
  - Pyrexia [Unknown]
  - Discomfort [Unknown]
  - Cachexia [Unknown]
  - Injection site swelling [Unknown]

NARRATIVE: CASE EVENT DATE: 20140612
